FAERS Safety Report 21079456 (Version 1)
Quarter: 2022Q3

REPORT INFORMATION
  Report Type: Spontaneous
  Country: US (occurrence: US)
  Receive Date: 20220714
  Receipt Date: 20220714
  Transmission Date: 20221026
  Serious: No
  Sender: FDA-Public Use
  Company Number: US-MTPC-MTDA2022-0018688

PATIENT

DRUGS (1)
  1. RADICAVA [Suspect]
     Active Substance: EDARAVONE
     Indication: Product used for unknown indication
     Dosage: UNK
     Route: 065
     Dates: start: 202202

REACTIONS (4)
  - Muscular weakness [Recovering/Resolving]
  - Fungal infection [Unknown]
  - Urinary tract infection [Unknown]
  - Headache [Recovering/Resolving]
